FAERS Safety Report 23089732 (Version 1)
Quarter: 2023Q4

REPORT INFORMATION
  Report Type: Report from Study
  Country: BE (occurrence: BE)
  Receive Date: 20231020
  Receipt Date: 20231020
  Transmission Date: 20240110
  Serious: Yes (Life-Threatening, Hospitalization)
  Sender: FDA-Public Use
  Company Number: BE-JNJFOC-20230860468

PATIENT
  Age: 56 Year
  Sex: Female
  Weight: 54 kg

DRUGS (26)
  1. AMIVANTAMAB [Suspect]
     Active Substance: AMIVANTAMAB
     Indication: Non-small cell lung cancer metastatic
     Dosage: LATEST DOSE WAS ON 18/AUG/2023.
     Route: 042
     Dates: start: 20221025
  2. PEMETREXED [Suspect]
     Active Substance: PEMETREXED
     Indication: Non-small cell lung cancer metastatic
     Route: 042
     Dates: start: 20221025, end: 20230818
  3. CARBOPLATIN [Concomitant]
     Active Substance: CARBOPLATIN
     Indication: Non-small cell lung cancer metastatic
     Route: 042
     Dates: start: 20221025, end: 20221230
  4. VISTA CAL D [Concomitant]
     Indication: Prophylaxis
     Route: 048
     Dates: start: 20200101, end: 20230824
  5. VENLAFAXINE [Concomitant]
     Active Substance: VENLAFAXINE HYDROCHLORIDE
     Indication: Anxiety
     Route: 048
     Dates: start: 20210401
  6. XGEVA [Concomitant]
     Active Substance: DENOSUMAB
     Indication: Prophylaxis
     Route: 058
     Dates: start: 20210416
  7. PANTOPRAZOLE SODIUM [Concomitant]
     Active Substance: PANTOPRAZOLE SODIUM
     Indication: Prophylaxis
     Route: 048
     Dates: start: 20211101
  8. MOVICOL [Concomitant]
     Active Substance: POLYETHYLENE GLYCOL 3350\POTASSIUM CHLORIDE\SODIUM BICARBONATE\SODIUM CHLORIDE
     Indication: Constipation
     Route: 048
     Dates: start: 20230901, end: 20230908
  9. MOVICOL [Concomitant]
     Active Substance: POLYETHYLENE GLYCOL 3350\POTASSIUM CHLORIDE\SODIUM BICARBONATE\SODIUM CHLORIDE
     Route: 048
     Dates: start: 20230908, end: 20230929
  10. MOVICOL [Concomitant]
     Active Substance: POLYETHYLENE GLYCOL 3350\POTASSIUM CHLORIDE\SODIUM BICARBONATE\SODIUM CHLORIDE
     Dosage: 1 UNIT DOSE NOT PROVIDED
     Route: 048
     Dates: start: 20221029, end: 20230908
  11. CETIRIZINE [Concomitant]
     Active Substance: CETIRIZINE HYDROCHLORIDE
     Indication: Rash
     Route: 048
     Dates: start: 20221103
  12. PRAZEPAM [Concomitant]
     Active Substance: PRAZEPAM
     Indication: Insomnia
     Route: 048
     Dates: start: 20230113
  13. RHINOVITA [Concomitant]
     Indication: Epistaxis
     Dosage: 1 UNIT UNSPECIFIED
     Route: 061
     Dates: start: 20230121
  14. POVIDONE-IODINE [Concomitant]
     Active Substance: POVIDONE-IODINE
     Indication: Paronychia
     Dosage: 1 UNIT UNSPECIFIED
     Route: 061
     Dates: start: 20230130
  15. CLOBETASOL [Concomitant]
     Active Substance: CLOBETASOL
     Indication: Paronychia
     Dosage: 1 UNIT UNSPECIFIED
     Route: 061
     Dates: start: 20230211, end: 20230818
  16. FUSIDIC ACID [Concomitant]
     Active Substance: FUSIDIC ACID
     Indication: Paronychia
     Dosage: 1 UNIT UNSPECIFIED
     Route: 061
     Dates: start: 20230211, end: 20230818
  17. NEOBACITRACINE [Concomitant]
     Indication: Paronychia
     Dosage: 1 UNIT UNSPECIFIED
     Route: 061
     Dates: start: 20230223, end: 20230818
  18. MINOCYCLINE HYDROCHLORIDE [Concomitant]
     Active Substance: MINOCYCLINE HYDROCHLORIDE
     Indication: Prophylaxis
     Route: 048
     Dates: start: 20230311
  19. BACTROBAN [Concomitant]
     Active Substance: MUPIROCIN\MUPIROCIN CALCIUM
     Indication: Paronychia
     Dosage: 1 UNIT UNSPECIFIED
     Route: 061
     Dates: start: 20230707
  20. LOCOID [Concomitant]
     Active Substance: HYDROCORTISONE BUTYRATE
     Indication: Paronychia
     Dosage: 1 UNIT UNSPECIFIED
     Route: 061
     Dates: start: 20230708, end: 20230908
  21. SODIUM CHLORIDE [Concomitant]
     Active Substance: SODIUM CHLORIDE
     Indication: Paronychia
     Route: 061
     Dates: start: 20230720
  22. LASIX [Concomitant]
     Active Substance: FUROSEMIDE
     Indication: Oedema peripheral
     Route: 048
     Dates: start: 20230818, end: 20230824
  23. LASIX [Concomitant]
     Active Substance: FUROSEMIDE
     Indication: Face oedema
  24. CALCIUM GLUCONATE [Concomitant]
     Active Substance: CALCIUM GLUCONATE
     Indication: Hypokalaemia
     Route: 048
     Dates: start: 20230720
  25. PANOTILE [FLUDROCORTISONE ACETATE;LIDOCAINE HYDROCHLORIDE;NEOMYCIN SUL [Concomitant]
     Indication: Mouth ulceration
     Dosage: 1 UNIT UNSPECIFIED
     Route: 061
     Dates: start: 20230818, end: 20230901
  26. D VITAL FORTE [Concomitant]
     Indication: Prophylaxis
     Route: 048
     Dates: start: 20230824

REACTIONS (2)
  - Hypokalaemia [Recovered/Resolved]
  - Neutropenia [Recovered/Resolved]

NARRATIVE: CASE EVENT DATE: 20230824
